FAERS Safety Report 10094414 (Version 2)
Quarter: 2014Q2

REPORT INFORMATION
  Report Type: Spontaneous
  Country: US (occurrence: US)
  Receive Date: 20140422
  Receipt Date: 20140422
  Transmission Date: 20141212
  Serious: Yes (Other)
  Sender: FDA-Public Use
  Company Number: US-ROCHE-1371712

PATIENT
  Sex: Female

DRUGS (2)
  1. RIBAVIRIN [Suspect]
     Indication: HEPATITIS C
     Dosage: 2.5 WEEKS
     Route: 048
     Dates: start: 201403
  2. SOVALDI [Suspect]
     Indication: HEPATITIS C
     Dosage: 2.5 WEEKS
     Route: 048
     Dates: start: 201403

REACTIONS (8)
  - Senile dementia [Unknown]
  - Fatigue [Not Recovered/Not Resolved]
  - Sedation [Not Recovered/Not Resolved]
  - Abnormal dreams [Not Recovered/Not Resolved]
  - Foot fracture [Not Recovered/Not Resolved]
  - Crying [Not Recovered/Not Resolved]
  - Emotional distress [Not Recovered/Not Resolved]
  - Fatigue [Not Recovered/Not Resolved]
